APPROVED DRUG PRODUCT: ENTECAVIR
Active Ingredient: ENTECAVIR
Strength: 0.5MG
Dosage Form/Route: TABLET;ORAL
Application: A212106 | Product #001
Applicant: SWISS PHARMACEUTICAL CO LTD
Approved: Aug 10, 2020 | RLD: No | RS: No | Type: DISCN